FAERS Safety Report 12661603 (Version 8)
Quarter: 2017Q1

REPORT INFORMATION
  Report Type: Spontaneous
  Country: US (occurrence: US)
  Receive Date: 20160817
  Receipt Date: 20170126
  Transmission Date: 20170428
  Serious: Yes (Hospitalization, Other)
  Sender: FDA-Public Use
  Company Number: US-PFIZER INC-2016342075

PATIENT
  Age: 71 Year
  Sex: Female
  Weight: 71 kg

DRUGS (30)
  1. SUTENT [Suspect]
     Active Substance: SUNITINIB MALATE
     Dosage: UNK, (SUTENT 50MG ALTERNATING WITH 12.5MG - 28 DAYS ON/14 DAYS OFF)
  2. SUTENT [Suspect]
     Active Substance: SUNITINIB MALATE
     Dosage: 37.5 MG, CYCLIC(37.5 MG/D FOR 4 WEEKS ON AND 2 WEEKS OFF, STARTING IN 2 WEEKS.)
  3. SUTENT [Suspect]
     Active Substance: SUNITINIB MALATE
     Dosage: UNK
     Dates: end: 201611
  4. NEURONTIN [Concomitant]
     Active Substance: GABAPENTIN
     Dosage: 900 MG (3 CAPSULES), 3X/DAY
     Route: 048
     Dates: start: 2010
  5. PHILLIPS COLON HEALTH [Concomitant]
     Dosage: UNK
     Dates: start: 2010, end: 201607
  6. SUTENT [Suspect]
     Active Substance: SUNITINIB MALATE
     Dosage: 12.5 MG, CYCLIC (4 WEEKS ON AND 2 WEEKS OFF)
  7. CELEXA [Concomitant]
     Active Substance: CITALOPRAM HYDROBROMIDE
     Dosage: 10 MG, 1X/DAY
     Route: 048
     Dates: start: 2010, end: 201608
  8. DURAGESIC [Concomitant]
     Active Substance: FENTANYL
     Dosage: 1 PATCH ON THE SKIN, EVERY THIRD DAY
     Dates: start: 20160622
  9. VICODIN [Concomitant]
     Active Substance: ACETAMINOPHEN\HYDROCODONE BITARTRATE
     Indication: PAIN
     Dosage: 1 TABLET, EVERY 4 HOURS AS NEEDED
     Route: 048
     Dates: start: 20160622
  10. SUTENT [Suspect]
     Active Substance: SUNITINIB MALATE
     Indication: COLON CANCER METASTATIC
     Dosage: 50 MG, CYCLIC (X 4 WEEKS - 2 WEEKS)(TAKE FOR 4 WEEKS OUT OF A 6 WEEK PERIOD)(28 DAYS ON/14 DAYS OFF)
     Route: 048
     Dates: start: 20160724, end: 20160904
  11. NORCO [Concomitant]
     Active Substance: ACETAMINOPHEN\HYDROCODONE BITARTRATE
     Indication: PAIN
     Dosage: 1 DF, AS NEEDED EVERY 6 HOURS
     Route: 048
  12. SUTENT [Suspect]
     Active Substance: SUNITINIB MALATE
     Dosage: 50 MG, CYCLIC(DAILY. FOR 28 DAYS EVERY 6 WEEKS)
     Route: 048
  13. VITAMIN D3 [Concomitant]
     Active Substance: CHOLECALCIFEROL
     Dosage: 1000 IU, DAILY
     Route: 048
     Dates: start: 2010
  14. VITAMIN B12 [Concomitant]
     Active Substance: CYANOCOBALAMIN
     Dosage: 100 UG, UNK
     Route: 048
     Dates: start: 2010
  15. NORCO [Concomitant]
     Active Substance: ACETAMINOPHEN\HYDROCODONE BITARTRATE
     Dosage: UNK
     Dates: start: 201606, end: 201608
  16. VITAMIN A [Concomitant]
     Active Substance: VITAMIN A
     Dosage: 10000 IU, DAILY
     Route: 048
     Dates: start: 2010
  17. SUTENT [Suspect]
     Active Substance: SUNITINIB MALATE
     Dosage: UNK(50 MG ONE DAY AND 12 MG THE NEXT DAY)
  18. VICODIN [Concomitant]
     Active Substance: ACETAMINOPHEN\HYDROCODONE BITARTRATE
     Dosage: 1 TABLET, EVERY 6 HOURS AS NEEDED
  19. VITAMIN B [Concomitant]
     Active Substance: VITAMIN B
     Dosage: UNK
  20. HYDROCODONE BITARTRATE AND ACETAMINOPHEN [Concomitant]
     Active Substance: ACETAMINOPHEN\HYDROCODONE BITARTRATE
     Dosage: UNK
  21. BEANO [Concomitant]
     Active Substance: ASPERGILLUS NIGER .ALPHA.-GALACTOSIDASE
     Dosage: UNK, AS NEEDED
     Dates: start: 201602
  22. SUTENT [Suspect]
     Active Substance: SUNITINIB MALATE
     Dosage: 37.5 MG, CYCLIC(TAKE 1 CAPSULE PO DAILY FOR 28 DAYS EVERY 6 WEEKS)
     Route: 048
  23. ZOLOFT [Concomitant]
     Active Substance: SERTRALINE HYDROCHLORIDE
     Dosage: UNK, DAILY(ONE HALF TABLET)
  24. NORCO [Concomitant]
     Active Substance: ACETAMINOPHEN\HYDROCODONE BITARTRATE
     Dosage: 1 DF, AS NEEDED(HYDROCODONE BITARTRATE 7.5 MG/ ACETAMINOPHEN 325 MG)(EVERY 4 (FOUR) HOURS)
     Route: 048
  25. VITAMIN D [Concomitant]
     Active Substance: CHOLECALCIFEROL
     Dosage: UNK
     Dates: start: 2010
  26. ASPERCREME NOS [Concomitant]
     Active Substance: MENTHOL\TROLAMINE SALICYLATE
     Dosage: UNK
     Dates: start: 201606
  27. SUTENT [Suspect]
     Active Substance: SUNITINIB MALATE
     Dosage: 50 MG, CYCLIC(DAILY FOR 28 DAYS, THEN 2 WEEKS REST)
     Dates: start: 20160725
  28. LOMOTIL [Concomitant]
     Active Substance: ATROPINE SULFATE\DIPHENOXYLATE HYDROCHLORIDE
     Indication: DIARRHOEA
     Dosage: 2.5-0.025 MG TABLET, (1 TABLET 4 (FOUR) TIMES A DAY AS NEEDED)
     Route: 048
  29. TUMS [Concomitant]
     Active Substance: CALCIUM CARBONATE
     Dosage: 500 MG, DAILY
  30. CALCIUM [Concomitant]
     Active Substance: CALCIUM
     Dosage: UNK
     Dates: start: 2010

REACTIONS (16)
  - Skin papilloma [Recovered/Resolved]
  - Blood pressure increased [Recovered/Resolved]
  - Hyperkeratosis [Unknown]
  - Palmar-plantar erythrodysaesthesia syndrome [Unknown]
  - White blood cell count decreased [Recovered/Resolved]
  - Fatigue [Recovered/Resolved]
  - Red blood cell count decreased [Recovered/Resolved]
  - Blood count abnormal [Recovered/Resolved]
  - Neoplasm progression [Unknown]
  - Product use issue [Unknown]
  - Platelet count decreased [Recovered/Resolved]
  - Thrombocytopenia [Recovered/Resolved]
  - Arthritis [Not Recovered/Not Resolved]
  - Musculoskeletal chest pain [Unknown]
  - Pain [Unknown]
  - Constipation [Unknown]

NARRATIVE: CASE EVENT DATE: 20160624
